FAERS Safety Report 23679299 (Version 1)
Quarter: 2024Q1

REPORT INFORMATION
  Report Type: Report from Study
  Country: ES (occurrence: None)
  Receive Date: 20240327
  Receipt Date: 20240327
  Transmission Date: 20240410
  Serious: Yes (Death, Hospitalization)
  Sender: FDA-Public Use
  Company Number: 2024A072566

PATIENT
  Age: 88 Year
  Sex: Male

DRUGS (1)
  1. CILGAVIMAB\TIXAGEVIMAB [Suspect]
     Active Substance: CILGAVIMAB\TIXAGEVIMAB
     Indication: COVID-19 prophylaxis
     Dosage: 150.0MG ONCE/SINGLE ADMINISTRATION
     Route: 030

REACTIONS (3)
  - Superinfection bacterial [Fatal]
  - COVID-19 [Fatal]
  - SARS-CoV-2 antibody test positive [Unknown]
